FAERS Safety Report 24353802 (Version 2)
Quarter: 2024Q4

REPORT INFORMATION
  Report Type: Report from Study
  Country: PL (occurrence: PL)
  Receive Date: 20240923
  Receipt Date: 20241005
  Transmission Date: 20250114
  Serious: Yes (Death)
  Sender: TEVA
  Company Number: PL-TEVA-VS-3244838

PATIENT

DRUGS (4)
  1. METHOTREXATE [Suspect]
     Active Substance: METHOTREXATE
     Indication: Central nervous system lymphoma
     Dosage: STARTED RECEIVING UNDER MATRIX PROTOCOL
     Route: 065
  2. THIOTEPA [Suspect]
     Active Substance: THIOTEPA
     Indication: Central nervous system lymphoma
     Dosage: STARTED RECEIVING UNDER MATRIX PROTOCOL
     Route: 065
  3. CYTARABINE [Suspect]
     Active Substance: CYTARABINE
     Indication: Central nervous system lymphoma
     Dosage: STARTED RECEIVING UNDER MATRIX PROTOCOL
     Route: 065
  4. RITUXIMAB [Suspect]
     Active Substance: RITUXIMAB
     Indication: Central nervous system lymphoma
     Dosage: STARTED RECEIVING UNDER MATRIX PROTOCOL
     Route: 065

REACTIONS (1)
  - Infection [Fatal]
